FAERS Safety Report 8814425 (Version 1)
Quarter: 2012Q4

REPORT INFORMATION
  Report Type: Spontaneous
  Country: US (occurrence: None)
  Receive Date: 20120927
  Receipt Date: 20120927
  Transmission Date: 20130627
  Serious: Yes (Other)
  Sender: FDA-Public Use
  Company Number: None

PATIENT
  Age: 37 Year
  Sex: Female
  Weight: 79.38 kg

DRUGS (1)
  1. ENBREL [Suspect]
     Indication: PSORIATIC ARTHRITIS
     Dosage: Dose Form: Injectable
Route: Subcutaneous 057
Frequency: q week
     Route: 058
     Dates: start: 20120806, end: 20120820

REACTIONS (5)
  - Injection site reaction [None]
  - Injection site erythema [None]
  - Injection site pruritus [None]
  - Injection site warmth [None]
  - Injection site swelling [None]
